FAERS Safety Report 24349022 (Version 2)
Quarter: 2024Q3

REPORT INFORMATION
  Report Type: Spontaneous
  Country: IT (occurrence: IT)
  Receive Date: 20240923
  Receipt Date: 20240924
  Transmission Date: 20241017
  Serious: Yes (Other)
  Sender: RANBAXY
  Company Number: IT-SUN PHARMACEUTICAL INDUSTRIES LTD-2024RR-469601

PATIENT
  Age: 55 Year
  Sex: Female

DRUGS (3)
  1. OXALIPLATIN [Suspect]
     Active Substance: OXALIPLATIN
     Indication: Adenocarcinoma of colon
     Dosage: 136.85 MILLIGRAM 1DOSE/1CYCLIC
     Route: 040
     Dates: start: 20240529, end: 20240529
  2. OXALIPLATIN [Suspect]
     Active Substance: OXALIPLATIN
     Dosage: 85 MG/MQ Q2W (FOLFOX6 THERAPY SCHEME) ADMINISTERED IN PARALLEL WITH CALCIUM LEVOFOLINATE
     Route: 040
  3. LEVOLEUCOVORIN CALCIUM [Concomitant]
     Active Substance: LEVOLEUCOVORIN CALCIUM
     Indication: Product used for unknown indication
     Dosage: 200 MG/SQM Q2W ACCORDING TO FOLFOX6 SCHEDULE (ADMINISTERED IN PARALLEL WITH OXALIPLATIN) 1DOSE/1CYCL
     Route: 040
     Dates: start: 20240508, end: 20240708

REACTIONS (6)
  - Infusion related reaction [Not Recovered/Not Resolved]
  - Neutropenia [Recovering/Resolving]
  - Dyspnoea [Not Recovered/Not Resolved]
  - Back pain [Recovered/Resolved]
  - Pain [Not Recovered/Not Resolved]
  - Tremor [Not Recovered/Not Resolved]

NARRATIVE: CASE EVENT DATE: 20240529
